FAERS Safety Report 5104228-7 (Version None)
Quarter: 2006Q3

REPORT INFORMATION
  Report Type: 
  Country: None (occurrence: None)
  Receive Date: 20060911
  Receipt Date: 20060901
  Transmission Date: 20061208
  Serious: Yes (Hospitalization, Other)
  Sender: FDA-Public Use
  Company Number: GXKR2006NG05412

PATIENT
  Age: 15 Year
  Sex: Female
  Weight: 58 kg

DRUGS (8)
  1. PREDNISOLONE TAB [Suspect]
     Dosage: 60 MG/M2, QD, ORAL
     Route: 048
  2. CAPTOPRIL [Suspect]
     Indication: HYPERTENSION
     Dosage: 0.4 MG/KG, QD, UNKNOWN
  3. AMPICILLIN [Concomitant]
  4. CLOXACILLIN (CLOXACILLIN) [Concomitant]
  5. FUROSEMIDE [Concomitant]
  6. PLASMA [Concomitant]
  7. HYDROCHLOROTHIAZIDE [Concomitant]
  8. SPIRONOLCTONE (SPIRONOLACTONE) [Concomitant]

REACTIONS (11)
  - ASCITES [None]
  - CONDITION AGGRAVATED [None]
  - FOCAL GLOMERULOSCLEROSIS [None]
  - HYPERTENSION [None]
  - NEPHROTIC SYNDROME [None]
  - OEDEMA [None]
  - OLIGURIA [None]
  - PNEUMONITIS [None]
  - RENAL FAILURE ACUTE [None]
  - STREPTOCOCCAL INFECTION [None]
  - VOMITING [None]
